FAERS Safety Report 15346791 (Version 5)
Quarter: 2018Q4

REPORT INFORMATION
  Report Type: Report from Study
  Country: RO (occurrence: RO)
  Receive Date: 20180904
  Receipt Date: 20181103
  Transmission Date: 20190204
  Serious: Yes (Death, Hospitalization)
  Sender: FDA-Public Use
  Company Number: RO-ROCHE-2177071

PATIENT
  Age: 57 Year
  Sex: Female
  Weight: 85.6 kg

DRUGS (11)
  1. PACLITAXEL. [Suspect]
     Active Substance: PACLITAXEL
     Indication: CERVIX CANCER METASTATIC
     Dosage: MOST RECENT DOSE PRIOR TO THE EVENT: 17/FEB/2017
     Route: 042
     Dates: start: 20161101
  2. FITOMENADIONA [Concomitant]
     Indication: METRORRHAGIA
     Route: 065
     Dates: start: 20180725, end: 20180728
  3. BEVACIZUMAB. [Suspect]
     Active Substance: BEVACIZUMAB
     Indication: CERVIX CANCER METASTATIC
     Dosage: MOST RECENT DOSE PRIOR TO THE EVENT: 08/AUG/2018
     Route: 042
     Dates: start: 20161101
  4. FITOMENADIONA [Concomitant]
     Route: 065
     Dates: start: 20180817, end: 20180820
  5. CARBOPLATIN. [Suspect]
     Active Substance: CARBOPLATIN
     Indication: CERVIX CANCER METASTATIC
     Dosage: MOST RECENT DOSE PRIOR TO THE EVENT: 17/FEB/2017
     Route: 042
     Dates: start: 20161101
  6. ADRENOSTAZIN [Concomitant]
     Indication: METRORRHAGIA
     Route: 065
     Dates: start: 20180725, end: 20180728
  7. ADRENOSTAZIN [Concomitant]
     Route: 065
     Dates: start: 20180817, end: 20180820
  8. PERINDOPRIL [Concomitant]
     Active Substance: PERINDOPRIL
     Dosage: ONGOING = CHECKED
     Route: 065
     Dates: start: 20100615
  9. ADRENOSTAZIN [Concomitant]
     Route: 065
     Dates: start: 20180816, end: 20180816
  10. FITOMENADIONA [Concomitant]
     Indication: METRORRHAGIA
     Dosage: 2 VIALS
     Route: 065
     Dates: start: 20180816, end: 20180816
  11. VENOFER [Concomitant]
     Active Substance: IRON SUCROSE
     Indication: ANAEMIA
     Dosage: ONGOING = CHECKED
     Route: 065
     Dates: start: 20180802

REACTIONS (1)
  - Metrorrhagia [Unknown]

NARRATIVE: CASE EVENT DATE: 20180815
